FAERS Safety Report 23514939 (Version 4)
Quarter: 2024Q4

REPORT INFORMATION
  Report Type: Report from Study
  Country: CA (occurrence: CA)
  Receive Date: 20240212
  Receipt Date: 20241125
  Transmission Date: 20250114
  Serious: Yes (Hospitalization, Other)
  Sender: ROCHE
  Company Number: CA-002147023-NVSC2023CA176088

PATIENT
  Age: 21 Year
  Sex: Female

DRUGS (3)
  1. XOLAIR [Suspect]
     Active Substance: OMALIZUMAB
     Indication: Chronic spontaneous urticaria
     Route: 058
     Dates: start: 20230620
  2. XOLAIR [Suspect]
     Active Substance: OMALIZUMAB
     Route: 058
  3. ADVIL [Suspect]
     Active Substance: IBUPROFEN
     Indication: Dysmenorrhoea
     Route: 065

REACTIONS (8)
  - Hypersensitivity [Unknown]
  - Dyspnoea [Not Recovered/Not Resolved]
  - Pruritus [Unknown]
  - Illness [Not Recovered/Not Resolved]
  - Anaphylactic shock [Recovered/Resolved]
  - Dysmenorrhoea [Recovered/Resolved]
  - Off label use [Unknown]
  - Urticaria [Not Recovered/Not Resolved]

NARRATIVE: CASE EVENT DATE: 20230701
